FAERS Safety Report 18147085 (Version 1)
Quarter: 2020Q3

REPORT INFORMATION
  Report Type: Spontaneous
  Country: KR (occurrence: KR)
  Receive Date: 20200814
  Receipt Date: 20200814
  Transmission Date: 20201103
  Serious: Yes (Other)
  Sender: FDA-Public Use
  Company Number: KR-NOVAST LABORATORIES LTD.-2020NOV000291

PATIENT
  Age: 25 Year
  Sex: Female

DRUGS (12)
  1. ARIPIPRAZOLE. [Suspect]
     Active Substance: ARIPIPRAZOLE
     Indication: SCHIZOPHRENIA
  2. AMISULPRIDE [Suspect]
     Active Substance: AMISULPRIDE
     Indication: INTELLECTUAL DISABILITY
     Dosage: 400 MILLIGRAM
     Route: 065
  3. BLONASERIN [Suspect]
     Active Substance: BLONANSERIN
     Indication: INTELLECTUAL DISABILITY
     Dosage: 8 MILLIGRAM
     Route: 065
  4. QUETIAPINE. [Suspect]
     Active Substance: QUETIAPINE
     Indication: SCHIZOPHRENIA
  5. PALIPERIDONE. [Suspect]
     Active Substance: PALIPERIDONE
     Indication: INTELLECTUAL DISABILITY
     Dosage: 9 MILLIGRAM, FOR 2 WEEKS
     Route: 065
  6. OLANZAPINE. [Suspect]
     Active Substance: OLANZAPINE
     Indication: INTELLECTUAL DISABILITY
     Dosage: 30 MILLIGRAM, FOR 2 WEEKS
     Route: 065
  7. PALIPERIDONE. [Suspect]
     Active Substance: PALIPERIDONE
     Indication: SCHIZOPHRENIA
  8. ARIPIPRAZOLE. [Suspect]
     Active Substance: ARIPIPRAZOLE
     Indication: INTELLECTUAL DISABILITY
     Dosage: 30 MILLIGRAM
     Route: 065
  9. OLANZAPINE. [Suspect]
     Active Substance: OLANZAPINE
     Indication: SCHIZOPHRENIA
     Dosage: 30 MILLIGRAM
     Route: 065
  10. BLONASERIN [Suspect]
     Active Substance: BLONANSERIN
     Indication: SCHIZOPHRENIA
  11. AMISULPRIDE [Suspect]
     Active Substance: AMISULPRIDE
     Indication: SCHIZOPHRENIA
  12. QUETIAPINE. [Suspect]
     Active Substance: QUETIAPINE
     Indication: INTELLECTUAL DISABILITY
     Dosage: 800 MILLIGRAM
     Route: 065

REACTIONS (3)
  - Drug ineffective [Unknown]
  - Drug interaction [Unknown]
  - Seizure [Recovered/Resolved]
